FAERS Safety Report 22398117 (Version 2)
Quarter: 2024Q1

REPORT INFORMATION
  Report Type: Spontaneous
  Country: CN (occurrence: CN)
  Receive Date: 20230602
  Receipt Date: 20240227
  Transmission Date: 20240410
  Serious: Yes (Other)
  Sender: FDA-Public Use
  Company Number: CN-SUN PHARMACEUTICAL INDUSTRIES LTD-2023R1-392420

PATIENT
  Age: 10 Year
  Sex: Male
  Weight: 36 kg

DRUGS (4)
  1. CETIRIZINE [Suspect]
     Active Substance: CETIRIZINE HYDROCHLORIDE
     Indication: Adenoidal hypertrophy
     Dosage: 10 MILLIGRAM, DAILY
     Route: 048
  2. MONTELUKAST [Suspect]
     Active Substance: MONTELUKAST SODIUM
     Indication: Adenoidal hypertrophy
     Dosage: 5 MILLIGRAM, DAILY
     Route: 048
  3. MOMETASONE [Suspect]
     Active Substance: MOMETASONE
     Indication: Adenoidal hypertrophy
     Dosage: UNK ONCE DAILY
     Route: 045
  4. BUDESONIDE\FORMOTEROL [Suspect]
     Active Substance: BUDESONIDE\FORMOTEROL
     Indication: Adenoidal hypertrophy
     Dosage: UNK 80 MICROG/4.5 MICROG DAILY

REACTIONS (1)
  - Drug ineffective [Unknown]
